FAERS Safety Report 10533413 (Version 3)
Quarter: 2015Q1

REPORT INFORMATION
  Report Type: Spontaneous
  Country: US (occurrence: US)
  Receive Date: 20141022
  Receipt Date: 20150105
  Transmission Date: 20150720
  Serious: No
  Sender: FDA-Public Use
  Company Number: US-PFIZER INC-2014285489

PATIENT
  Age: 53 Year
  Sex: Female
  Weight: 73 kg

DRUGS (9)
  1. LEVOTHYROXINE [Concomitant]
     Active Substance: LEVOTHYROXINE
     Indication: THYROID DISORDER
     Dosage: 100 MG, DAILY
  2. OXYCONTIN [Concomitant]
     Active Substance: OXYCODONE HYDROCHLORIDE
     Indication: PAIN
     Dosage: 15 IR AS NEEDED
  3. CYMBALTA [Concomitant]
     Active Substance: DULOXETINE HYDROCHLORIDE
     Indication: DEPRESSION
     Dosage: 60 MG, UNK
  4. DIAZEPAM. [Concomitant]
     Active Substance: DIAZEPAM
     Indication: ARTHRALGIA
  5. HYDROCORTISONE. [Concomitant]
     Active Substance: HYDROCORTISONE
     Indication: THYROID DISORDER
     Dosage: 10 MG (2 TABLETS IN THE MORNING AND 1 IN THE AFTERNOON)
  6. MORPHINE SULFATE. [Concomitant]
     Active Substance: MORPHINE SULFATE
     Indication: PAIN
     Dosage: 30 MG, AS NEEDED
  7. FLUCONAZOLE. [Suspect]
     Active Substance: FLUCONAZOLE
     Indication: CANDIDA INFECTION
     Dosage: 200 MG, UNK
     Dates: start: 201403, end: 201407
  8. DIAZEPAM. [Concomitant]
     Active Substance: DIAZEPAM
     Indication: MUSCLE SPASMS
     Dosage: 10 MG, AS NEEDED
  9. OXYCONTIN DAINIPPO [Concomitant]
     Indication: PAIN
     Dosage: ^15 IR^, AS NEEDED

REACTIONS (2)
  - White blood cell count increased [Unknown]
  - Drug ineffective [Unknown]
